FAERS Safety Report 23663269 (Version 4)
Quarter: 2024Q2

REPORT INFORMATION
  Report Type: Spontaneous
  Country: BE (occurrence: BE)
  Receive Date: 20240322
  Receipt Date: 20240523
  Transmission Date: 20240716
  Serious: Yes (Hospitalization, Other)
  Sender: FDA-Public Use
  Company Number: BE-MYLANLABS2023M-1121759

PATIENT
  Age: 43 Year
  Sex: Male
  Weight: 68.4 kg

DRUGS (20)
  1. TACROLIMUS [Suspect]
     Active Substance: TACROLIMUS
     Indication: Prophylaxis against transplant rejection
     Dosage: 2 MILLIGRAM, BID (BASED UPON TDM)
     Route: 048
     Dates: start: 202202, end: 20221125
  2. POSACONAZOLE [Interacting]
     Active Substance: POSACONAZOLE
     Indication: Aspergillus infection
     Dosage: 300 MILLIGRAM, QD
     Dates: start: 20221007, end: 20221205
  3. COTRIMOXAZOLE [Interacting]
     Active Substance: SULFAMETHOXAZOLE\TRIMETHOPRIM
     Indication: Nocardiosis
     Dosage: 960 MILLIGRAM, BID
     Route: 048
     Dates: start: 20220926, end: 20221115
  4. AMPHOTERICIN B [Suspect]
     Active Substance: AMPHOTERICIN B
     Indication: Bronchopulmonary aspergillosis
     Dosage: UNK, QD (3 MILLIGRAM PER KILOGRAM PER DAY)
     Route: 042
     Dates: start: 20221007, end: 20221110
  5. VORICONAZOLE [Concomitant]
     Active Substance: VORICONAZOLE
     Indication: Bronchopulmonary aspergillosis
     Dosage: 300 MILLIGRAM, BID ((CHANGE D BASED  UPON  TDM)
     Dates: start: 20220902, end: 20231007
  6. MEROPENEM [Concomitant]
     Active Substance: MEROPENEM
     Indication: Central nervous system infection
     Dosage: 1 GRAM, TID
     Dates: start: 20220926, end: 20231110
  7. CEFTRIAXONE [Concomitant]
     Active Substance: CEFTRIAXONE\CEFTRIAXONE SODIUM
     Indication: Nocardiosis
     Dosage: 2 GRAM, QD
     Dates: start: 20221115, end: 20230209
  8. MYCOPHENOLIC ACID [Concomitant]
     Active Substance: MYCOPHENOLIC ACID
     Indication: Prophylaxis against transplant rejection
     Dosage: 1 GRAM, BID
     Dates: start: 20220213
  9. CASPOFUNGIN [Concomitant]
     Active Substance: CASPOFUNGIN
     Indication: Bronchopulmonary aspergillosis
     Dosage: 50 MILLIGRAM, QD
     Dates: start: 20220914, end: 20220926
  10. MEROPENEM [Concomitant]
     Active Substance: MEROPENEM
     Indication: Evidence based treatment
     Dosage: 1 GRAM, TID
     Dates: start: 20220926, end: 20231110
  11. MEROPENEM [Concomitant]
     Active Substance: MEROPENEM
     Indication: Cerebral nocardiosis
     Dosage: 1 GRAM, TID
     Dates: start: 20220926, end: 20231110
  12. MEROPENEM [Concomitant]
     Active Substance: MEROPENEM
     Indication: Bronchopulmonary aspergillosis
     Dosage: 1 GRAM, TID
     Dates: start: 20220926, end: 20231110
  13. AMPHOTERICIN B [Suspect]
     Active Substance: AMPHOTERICIN B
     Indication: Cerebral nocardiosis
     Dosage: UNK, QD (3 MILLIGRAM PER KILOGRAM PER DAY)
     Dates: start: 20221007, end: 20221110
  14. AMPHOTERICIN B [Suspect]
     Active Substance: AMPHOTERICIN B
     Indication: Evidence based treatment
     Dosage: UNK, QD (3 MILLIGRAM PER KILOGRAM PER DAY)
     Dates: start: 20221007, end: 20221110
  15. POSACONAZOLE [Interacting]
     Active Substance: POSACONAZOLE
     Indication: Drug therapy
     Dosage: 300 MILLIGRAM, QD
     Dates: start: 20221007, end: 20221205
  16. CASPOFUNGIN [Concomitant]
     Active Substance: CASPOFUNGIN
     Indication: Evidence based treatment
     Dosage: 50 MILLIGRAM, QD
     Dates: start: 20220914, end: 20220926
  17. CASPOFUNGIN [Concomitant]
     Active Substance: CASPOFUNGIN
     Indication: Bronchopulmonary aspergillosis
     Dosage: 50 MILLIGRAM, QD
     Dates: start: 20220914, end: 20220926
  18. CASPOFUNGIN [Concomitant]
     Active Substance: CASPOFUNGIN
     Indication: Cerebral nocardiosis
     Dosage: 50 MILLIGRAM, QD
     Dates: start: 20220914, end: 20220926
  19. TACROLIMUS [Suspect]
     Active Substance: TACROLIMUS
     Indication: Product used for unknown indication
  20. CASPOFUNGIN [Concomitant]
     Active Substance: CASPOFUNGIN
     Indication: Aspergillus infection
     Dosage: 50 MILLIGRAM, QD
     Dates: start: 20221205, end: 20230331

REACTIONS (8)
  - Drug interaction [Recovered/Resolved]
  - Microangiopathic haemolytic anaemia [Recovered/Resolved]
  - Respiratory distress [Unknown]
  - Pancytopenia [Recovered/Resolved]
  - Acute kidney injury [Recovered/Resolved]
  - Pyrexia [Unknown]
  - Condition aggravated [Unknown]
  - General physical health deterioration [Unknown]

NARRATIVE: CASE EVENT DATE: 20221109
